FAERS Safety Report 14482596 (Version 2)
Quarter: 2018Q1

REPORT INFORMATION
  Report Type: Spontaneous
  Country: FR (occurrence: FR)
  Receive Date: 20180203
  Receipt Date: 20180205
  Transmission Date: 20180509
  Serious: No
  Sender: FDA-Public Use
  Company Number: FR-009507513-1801FRA015004

PATIENT
  Age: 26 Year
  Sex: Female

DRUGS (1)
  1. VARNOLINE [Suspect]
     Active Substance: DESOGESTREL\ETHINYL ESTRADIOL
     Indication: CONTRACEPTION
     Dosage: UNK
     Route: 048
     Dates: start: 201712

REACTIONS (7)
  - Uterine scar [Unknown]
  - Amenorrhoea [Unknown]
  - Vaginal haemorrhage [Unknown]
  - Adenomyosis [Unknown]
  - Uterine pain [Unknown]
  - Endometrial thickening [Unknown]
  - Menstrual disorder [Unknown]

NARRATIVE: CASE EVENT DATE: 201801
